FAERS Safety Report 14148733 (Version 4)
Quarter: 2023Q4

REPORT INFORMATION
  Report Type: Other
  Country: DE (occurrence: DE)
  Receive Date: 20171101
  Receipt Date: 20231012
  Transmission Date: 20240110
  Serious: Yes (Hospitalization)
  Sender: FDA-Public Use
  Company Number: DE-ROCHE-1638923

PATIENT
  Age: 70 Year
  Sex: Female
  Weight: 67 kg

DRUGS (11)
  1. XELODA [Suspect]
     Active Substance: CAPECITABINE
     Indication: Breast cancer
     Dosage: FROM D1-D14 OF EACH CYCLE
     Route: 048
     Dates: start: 20140923, end: 20150209
  2. XELODA [Suspect]
     Active Substance: CAPECITABINE
     Dosage: FROM D1-D14 OF EACH CYCLE
     Route: 048
     Dates: start: 20150217, end: 20150227
  3. XELODA [Suspect]
     Active Substance: CAPECITABINE
     Dosage: FROM D1-D14 OF EACH CYCLE
     Route: 048
     Dates: start: 20150324, end: 20150901
  4. BEVACIZUMAB [Suspect]
     Active Substance: BEVACIZUMAB
     Indication: Breast cancer
     Dosage: DATE OF LAST DOSE PRIOR TO SAE: 18/AUG/2015
     Route: 042
     Dates: start: 20140923
  5. INNOHEP [Concomitant]
     Active Substance: TINZAPARIN SODIUM
     Indication: Deep vein thrombosis
     Route: 058
     Dates: start: 20150424, end: 201509
  6. RAMIPRIL [Concomitant]
     Active Substance: RAMIPRIL
     Indication: Hypertension
     Route: 048
     Dates: start: 20141010, end: 20141104
  7. RAMIPRIL [Concomitant]
     Active Substance: RAMIPRIL
     Route: 048
     Dates: start: 20141105
  8. GRANISETRON [Concomitant]
     Active Substance: GRANISETRON
     Indication: Nausea
     Dates: start: 20140923
  9. GRANISETRON [Concomitant]
     Active Substance: GRANISETRON
     Dosage: DAILY DOSE: 1 MG MILLGRAM(S) EVERY 3 WEEK
     Route: 042
     Dates: start: 20140923, end: 20150908
  10. DEXAMETHASONE [Concomitant]
     Active Substance: DEXAMETHASONE
     Indication: Nausea
     Route: 048
     Dates: start: 20150217, end: 201505
  11. MCP [Concomitant]
     Active Substance: METOCLOPRAMIDE HYDROCHLORIDE
     Indication: Nausea
     Route: 048
     Dates: start: 20140923

REACTIONS (1)
  - Haematuria [Recovered/Resolved]

NARRATIVE: CASE EVENT DATE: 20150923
